FAERS Safety Report 13447192 (Version 1)
Quarter: 2017Q2

REPORT INFORMATION
  Report Type: Spontaneous
  Country: US (occurrence: US)
  Receive Date: 20170416
  Receipt Date: 20170416
  Transmission Date: 20170830
  Serious: Yes (Life-Threatening, Hospitalization)
  Sender: FDA-Public Use
  Company Number: None

PATIENT
  Age: 36 Year
  Sex: Female
  Weight: 62.1 kg

DRUGS (2)
  1. BACTRIM [Suspect]
     Active Substance: SULFAMETHOXAZOLE\TRIMETHOPRIM
     Indication: SINUSITIS
     Dates: start: 20150812, end: 20150816
  2. BACTRIM [Suspect]
     Active Substance: SULFAMETHOXAZOLE\TRIMETHOPRIM
     Indication: BRONCHITIS
     Dates: start: 20150812, end: 20150816

REACTIONS (6)
  - Vomiting [None]
  - Guillain-Barre syndrome [None]
  - Pyrexia [None]
  - Diarrhoea [None]
  - Hypoaesthesia [None]
  - Paralysis [None]

NARRATIVE: CASE EVENT DATE: 20150814
